FAERS Safety Report 6833848-4 (Version None)
Quarter: 2010Q3

REPORT INFORMATION
  Report Type: 
  Country: None (occurrence: None)
  Receive Date: 20100712
  Receipt Date: 20070502
  Transmission Date: 20110219
  Serious: Yes (Other)
  Sender: FDA-Public Use
  Company Number: US-PFIZER INC-2007027921

PATIENT
  Sex: Female
  Weight: 54.4 kg

DRUGS (2)
  1. CHANTIX [Suspect]
     Indication: EX-TOBACCO USER
     Dates: start: 20070401, end: 20070401
  2. ATENOLOL [Suspect]
     Indication: ARRHYTHMIA

REACTIONS (4)
  - DIZZINESS [None]
  - FEELING HOT [None]
  - INSOMNIA [None]
  - PALPITATIONS [None]
